FAERS Safety Report 4915415-2 (Version None)
Quarter: 2006Q1

REPORT INFORMATION
  Report Type: 
  Country: None (occurrence: None)
  Receive Date: 20060217
  Receipt Date: 20050513
  Transmission Date: 20060701
  Serious: Yes (Death, Hospitalization, Other)
  Sender: FDA-Public Use
  Company Number: US-MERCK-0505USA01818

PATIENT
  Age: 68 Year
  Sex: Female
  Weight: 70 kg

DRUGS (1)
  1. VIOXX [Suspect]
     Indication: OSTEOARTHRITIS
     Route: 048

REACTIONS (30)
  - ABDOMINAL PAIN [None]
  - ANAEMIA [None]
  - ARRHYTHMIA [None]
  - ASCITES [None]
  - ASTHENIA [None]
  - ATELECTASIS [None]
  - BRADYCARDIA [None]
  - BRONCHITIS ACUTE [None]
  - CARDIAC FAILURE CONGESTIVE [None]
  - CHRONIC OBSTRUCTIVE PULMONARY DISEASE [None]
  - COMPRESSION FRACTURE [None]
  - DEATH [None]
  - DIVERTICULITIS [None]
  - DUODENAL ULCER [None]
  - DYSPNOEA [None]
  - GASTRITIS HAEMORRHAGIC [None]
  - HAEMORRHAGE [None]
  - HYPERTROPHIC CARDIOMYOPATHY [None]
  - HYPONATRAEMIA [None]
  - INTRACARDIAC THROMBUS [None]
  - IRON DEFICIENCY ANAEMIA [None]
  - LOCAL SWELLING [None]
  - MENTAL STATUS CHANGES [None]
  - MYOCARDIAL INFARCTION [None]
  - PNEUMONIA [None]
  - PYREXIA [None]
  - SICK SINUS SYNDROME [None]
  - SINUSITIS [None]
  - SWELLING FACE [None]
  - URINARY TRACT INFECTION [None]
